FAERS Safety Report 8723885 (Version 3)
Quarter: 2012Q4

REPORT INFORMATION
  Report Type: 
  Country: US (occurrence: US)
  Receive Date: 20120815
  Receipt Date: 20120924
  Transmission Date: 20130627
  Serious: No
  Sender: FDA-Public Use
  Company Number: US-PFIZER INC-2012197559

PATIENT
  Age: 92 Year
  Sex: Female
  Weight: 54.42 kg

DRUGS (6)
  1. CELEBREX [Suspect]
     Indication: PAIN IN EXTREMITY
     Dosage: 200 mg, 1x/day
     Route: 048
     Dates: start: 20120713
  2. CELEBREX [Suspect]
     Dosage: 200 mg, 1x/day
  3. SPIRONOLACTONE [Concomitant]
     Dosage: UNK
  4. ISOSORBIDE [Concomitant]
     Dosage: UNK
  5. METOPROLOL [Concomitant]
     Dosage: UNK
  6. FEOSOL [Concomitant]
     Dosage: UNK

REACTIONS (5)
  - Visual impairment [Unknown]
  - Hearing impaired [Unknown]
  - Pain in extremity [Unknown]
  - Drug ineffective [Unknown]
  - Sciatica [Unknown]
